FAERS Safety Report 14983902 (Version 1)
Quarter: 2018Q2

REPORT INFORMATION
  Report Type: Spontaneous
  Country: US (occurrence: US)
  Receive Date: 20180607
  Receipt Date: 20180607
  Transmission Date: 20180711
  Serious: Yes (Hospitalization, Other)
  Sender: FDA-Public Use
  Company Number: US-TEVA-2018-US-900726

PATIENT
  Age: 59 Year
  Sex: Male

DRUGS (2)
  1. PREDNISONE. [Suspect]
     Active Substance: PREDNISONE
     Indication: FOCAL SEGMENTAL GLOMERULOSCLEROSIS
     Route: 065
  2. MYCOPHENOLATE [Suspect]
     Active Substance: MYCOPHENOLIC ACID
     Indication: FOCAL SEGMENTAL GLOMERULOSCLEROSIS
     Route: 065

REACTIONS (4)
  - Acute kidney injury [Unknown]
  - Cryptococcal fungaemia [Recovering/Resolving]
  - Hyperammonaemic encephalopathy [Recovered/Resolved]
  - Meningitis [Recovering/Resolving]
